FAERS Safety Report 8060213-7 (Version None)
Quarter: 2012Q1

REPORT INFORMATION
  Report Type: 
  Country: None (occurrence: None)
  Receive Date: 20120111
  Receipt Date: 20120103
  Transmission Date: 20120608
  Serious: Yes (Other)
  Sender: FDA-Public Use
  Company Number: 2012SP000572

PATIENT
  Sex: Male

DRUGS (3)
  1. PEG-INTRON [Suspect]
     Indication: HEPATITIS C
     Dates: start: 20111202
  2. BOCEPREVIR [Suspect]
     Indication: HEPATITIS C
     Dates: start: 20111230
  3. RIBAVIRIN [Suspect]
     Indication: HEPATITIS C
     Dates: start: 20111202

REACTIONS (10)
  - DYSURIA [None]
  - DEPRESSION [None]
  - NAUSEA [None]
  - EYE PAIN [None]
  - HYPOPHAGIA [None]
  - PAIN [None]
  - SLUGGISHNESS [None]
  - PRESYNCOPE [None]
  - FATIGUE [None]
  - SUICIDAL IDEATION [None]
